FAERS Safety Report 15554838 (Version 1)
Quarter: 2018Q4

REPORT INFORMATION
  Report Type: Spontaneous
  Country: GB (occurrence: GB)
  Receive Date: 20181026
  Receipt Date: 20181026
  Transmission Date: 20190205
  Serious: No
  Sender: FDA-Public Use
  Company Number: GB-B. BRAUN MEDICAL INC.-2058057

PATIENT
  Age: 36 Year
  Sex: Female

DRUGS (4)
  1. DEPO-MEDROL [Concomitant]
     Active Substance: METHYLPREDNISOLONE ACETATE
  2. BUPIVACAINE. [Concomitant]
     Active Substance: BUPIVACAINE
  3. STERILE WATER [Suspect]
     Active Substance: WATER
  4. FEMODETTE (ETHINYLESTRADIOL, GESTODENE) [Concomitant]

REACTIONS (4)
  - Pruritus [Recovered/Resolved]
  - Lacrimation increased [Recovered/Resolved]
  - Sneezing [Recovered/Resolved]
  - Oropharyngeal pain [Recovered/Resolved]
